FAERS Safety Report 23933450 (Version 1)
Quarter: 2024Q2

REPORT INFORMATION
  Report Type: Spontaneous
  Country: US (occurrence: US)
  Receive Date: 20240603
  Receipt Date: 20240603
  Transmission Date: 20240715
  Serious: No
  Sender: FDA-Public Use
  Company Number: US-DRL-USA-LIT/USA/24/0007844

PATIENT
  Age: 58 Year
  Sex: Male

DRUGS (13)
  1. PREGABALIN [Suspect]
     Active Substance: PREGABALIN
     Indication: Restless legs syndrome
  2. ROPINIROLE [Suspect]
     Active Substance: ROPINIROLE
     Indication: Restless legs syndrome
     Dosage: HIGH DOSE
  3. PRAMIPEXOLE [Suspect]
     Active Substance: PRAMIPEXOLE\PRAMIPEXOLE DIHYDROCHLORIDE
     Indication: Restless legs syndrome
  4. PRAMIPEXOLE [Suspect]
     Active Substance: PRAMIPEXOLE\PRAMIPEXOLE DIHYDROCHLORIDE
  5. GABAPENTIN [Concomitant]
     Active Substance: GABAPENTIN
     Indication: Restless legs syndrome
  6. TRAMADOL [Concomitant]
     Active Substance: TRAMADOL\TRAMADOL HYDROCHLORIDE
     Indication: Restless legs syndrome
  7. HYDROCODONE [Concomitant]
     Active Substance: HYDROCODONE
     Indication: Restless legs syndrome
  8. METHADONE [Concomitant]
     Active Substance: METHADONE HYDROCHLORIDE
     Indication: Restless legs syndrome
  9. METHADONE [Concomitant]
     Active Substance: METHADONE HYDROCHLORIDE
  10. ROTIGOTINE [Concomitant]
     Active Substance: ROTIGOTINE
     Indication: Restless legs syndrome
     Dosage: PATCH
  11. ROTIGOTINE [Concomitant]
     Active Substance: ROTIGOTINE
     Dosage: PATCH
  12. ENZALUTAMIDE [Concomitant]
     Active Substance: ENZALUTAMIDE
     Indication: Restless legs syndrome
  13. APALUTAMIDE [Concomitant]
     Active Substance: APALUTAMIDE
     Indication: Restless legs syndrome

REACTIONS (2)
  - Drug ineffective for unapproved indication [Unknown]
  - Residual symptom [Unknown]
